FAERS Safety Report 4711433-8 (Version None)
Quarter: 2005Q3

REPORT INFORMATION
  Report Type: 
  Country: None (occurrence: None)
  Receive Date: 20050711
  Receipt Date: 20050622
  Transmission Date: 20060218
  Serious: Yes (Hospitalization)
  Sender: FDA-Public Use
  Company Number: 2004-BP-05243RO

PATIENT
  Age: 62 Year
  Sex: Male

DRUGS (14)
  1. PREDNISONE TAB [Suspect]
     Indication: MANTLE CELL LYMPHOMA
     Dosage: 100 MG/DAY FOR 5 DAYS (R-CHOP 1 CYCLE EERY 21 DAYS(, PO
     Route: 048
     Dates: start: 20030318, end: 20030912
  2. GENASENSE [Suspect]
     Indication: MANTLE CELL LYMPHOMA
     Dosage: 3 MG/KG/DAY (7 DAY CYCLE EVERY 21 DAYS), IV
     Route: 042
     Dates: start: 20030108, end: 20030915
  3. RITUXIMAB (RITUXIMAB) [Suspect]
     Indication: MANTLE CELL LYMPHOMA
     Dosage: 375 MG/M2 (R-CHOP 1 CYCLE EVERY 21 DAYS), IV
     Route: 042
     Dates: start: 20030318, end: 20030912
  4. CYCLOPHOSPHAMIDE [Suspect]
     Indication: MANTLE CELL LYMPHOMA
     Dosage: 750 MG/M2 (R-CHOP 1 CYCLE EVERY 21 DAYS), IV
     Route: 042
     Dates: start: 20030318, end: 20030912
  5. DOXORUBICIN (DOXORUBICIN) [Suspect]
     Indication: MANTLE CELL LYMPHOMA
     Dosage: 50 MG/M2 (R-CHOP 1 CYCLE EVERY 21 ), IV
     Route: 042
     Dates: start: 20030318, end: 20030912
  6. VINCRISTINE [Suspect]
     Indication: MANTLE CELL LYMPHOMA
     Dosage: 1.4 MG/M2 (R-CHOP 1 CYCLE EVERY 21 DAYS), IV
     Route: 042
     Dates: start: 20030318, end: 20030912
  7. ASPIRIN [Concomitant]
  8. PANTOPRAZOLE SODIUM [Concomitant]
  9. SIMVASTATIN [Concomitant]
  10. CALCIUM CARBONATE (CALCIUM CARBONATE) [Concomitant]
  11. DEXAMETHASONE [Concomitant]
  12. DIPHENHYDRAMINE HCL [Concomitant]
  13. ONDANSETRON HCL [Concomitant]
  14. PEGFILGRASTIM (PEGFILGRASTIM) [Concomitant]

REACTIONS (11)
  - BACTERIA BLOOD IDENTIFIED [None]
  - DEHYDRATION [None]
  - DISSEMINATED INTRAVASCULAR COAGULATION [None]
  - ENTEROBACTER INFECTION [None]
  - FEBRILE NEUTROPENIA [None]
  - HAEMOGLOBIN DECREASED [None]
  - HYPOTENSION [None]
  - RENAL FAILURE ACUTE [None]
  - RESPIRATORY RATE INCREASED [None]
  - SEPSIS [None]
  - THROMBOCYTOPENIA [None]
